FAERS Safety Report 9646690 (Version 1)
Quarter: 2013Q4

REPORT INFORMATION
  Report Type: Report from Study
  Country: US (occurrence: US)
  Receive Date: 20131027
  Receipt Date: 20131027
  Transmission Date: 20140711
  Serious: Yes (Hospitalization)
  Sender: FDA-Public Use
  Company Number: US-AMGEN-USACT2013074218

PATIENT
  Age: 46 Year
  Sex: Female
  Weight: 104.31 kg

DRUGS (7)
  1. PANITUMUMAB [Suspect]
     Indication: BREAST CANCER METASTATIC
     Dosage: UNK
     Route: 065
     Dates: start: 20120512
  2. PACLITAXEL [Concomitant]
     Indication: BREAST CANCER METASTATIC
     Dosage: 80 MG/M2, DAY1, 8 AND 15, Q28DAYS
     Route: 065
     Dates: start: 20120512, end: 20130410
  3. CARBOPLATIN [Concomitant]
     Indication: BREAST CANCER METASTATIC
     Dosage: AUC2, BID DAY1 AND DAY15 Q28DAYS
     Route: 065
     Dates: start: 20120512, end: 20130410
  4. REMERON [Concomitant]
     Dosage: 15 MG, QD
  5. ALPRAZOLAM [Concomitant]
     Dosage: 0.25 MG, TID
     Route: 048
  6. CLINDAMYCIN [Concomitant]
     Dosage: UNK UNK, BID
     Route: 048
  7. OMEPRAZOLE [Concomitant]
     Dosage: 1 DF, QD
     Route: 048

REACTIONS (14)
  - Normochromic normocytic anaemia [Unknown]
  - Hypovolaemic shock [Unknown]
  - Metabolic acidosis [Unknown]
  - Sepsis [Unknown]
  - Clostridium difficile infection [Unknown]
  - Lactic acidosis [Unknown]
  - Mental impairment [Unknown]
  - Back pain [Unknown]
  - Hypokalaemia [Unknown]
  - Diarrhoea [Unknown]
  - Hypomagnesaemia [Unknown]
  - Asthenia [Unknown]
  - Deep vein thrombosis [Unknown]
  - Dyspnoea [Unknown]
